FAERS Safety Report 4663054-3 (Version None)
Quarter: 2005Q2

REPORT INFORMATION
  Report Type: 
  Country: None (occurrence: None)
  Receive Date: 20050513
  Receipt Date: 20050428
  Transmission Date: 20051028
  Serious: Yes (Other)
  Sender: FDA-Public Use
  Company Number: MED000141

PATIENT
  Age: 79 Year
  Sex: Male

DRUGS (6)
  1. SODIUM CHLORIDE 0.9% IN PLASTIC CONTAINER [Suspect]
     Indication: CEREBROVASCULAR ACCIDENT
     Dosage: CONTINUOUS; INTRAVENOUS
     Route: 042
     Dates: start: 20050425
  2. NOOTROPIL [Concomitant]
  3. ACARD [Concomitant]
  4. INSULIN HUMAN [Concomitant]
  5. FLUTAMIDE [Concomitant]
  6. TERAZOSIN [Concomitant]

REACTIONS (6)
  - BODY TEMPERATURE INCREASED [None]
  - CHILLS [None]
  - FEELING COLD [None]
  - INFUSION RELATED REACTION [None]
  - TACHYCARDIA [None]
  - TREMOR [None]
